FAERS Safety Report 10209904 (Version 1)
Quarter: 2014Q2

REPORT INFORMATION
  Report Type: Spontaneous
  Country: US (occurrence: US)
  Receive Date: 20140602
  Receipt Date: 20140602
  Transmission Date: 20141212
  Serious: Yes (Other)
  Sender: FDA-Public Use
  Company Number: US-SHIRE-US201402455

PATIENT
  Age: 25 Year
  Sex: Male

DRUGS (2)
  1. PENTASA [Suspect]
     Indication: CROHN^S DISEASE
     Dosage: 4 G, 1X/DAY:QD
     Route: 048
     Dates: start: 2014, end: 201405
  2. PENTASA [Suspect]
     Dosage: UNK UNK, UNKNOWN
     Route: 048

REACTIONS (2)
  - Pancreatitis [Unknown]
  - Off label use [Recovered/Resolved]
